FAERS Safety Report 4832265-6 (Version None)
Quarter: 2005Q4

REPORT INFORMATION
  Report Type: 
  Country: None (occurrence: None)
  Receive Date: 20051119
  Receipt Date: 20051110
  Transmission Date: 20060501
  Serious: Yes (Other)
  Sender: FDA-Public Use
  Company Number: GB-ABBOTT-05P-167-0316966-00

PATIENT
  Age: 51 Year
  Sex: Female

DRUGS (6)
  1. EPILIM CHRONO TABLETS [Suspect]
     Indication: EPILEPSY
     Route: 048
     Dates: start: 20041104
  2. EPILIM CHRONO TABLETS [Suspect]
     Indication: ASTHMA
     Route: 048
  3. MONTELUKAST SODIUM [Interacting]
     Indication: ASTHMA
     Route: 048
     Dates: start: 20041208, end: 20050104
  4. PHENYTOIN [Interacting]
     Indication: EPILEPSY
     Route: 048
     Dates: start: 20010101
  5. BENDROFLUMETHIAZIDE [Concomitant]
     Indication: DRUG USE FOR UNKNOWN INDICATION
     Route: 048
     Dates: start: 20030131
  6. PERINDOPRIL [Concomitant]
     Indication: DRUG USE FOR UNKNOWN INDICATION
     Route: 048
     Dates: start: 20020315

REACTIONS (2)
  - DRUG INTERACTION [None]
  - EPILEPSY [None]
